FAERS Safety Report 9797479 (Version 1)
Quarter: 2014Q1

REPORT INFORMATION
  Report Type: Report from Study
  Country: MX (occurrence: MX)
  Receive Date: 20140106
  Receipt Date: 20140106
  Transmission Date: 20141002
  Serious: Yes (Other)
  Sender: FDA-Public Use
  Company Number: PHHY2012MX065719

PATIENT
  Age: 65 Year
  Sex: Female

DRUGS (7)
  1. ACLASTA [Suspect]
     Dosage: 5 MG/ 100ML ONCE BY YEAR
     Route: 042
     Dates: start: 20091126
  2. VITAMIN D [Concomitant]
     Dosage: UNK UKN, BID
     Dates: start: 20120708
  3. CALTRATE [Concomitant]
     Dosage: UNK UKN, BID
     Dates: start: 20120708
  4. FOLIC ACID [Concomitant]
     Dosage: UNK UKN, BID
     Dates: start: 20120708
  5. VESSEL DUE F [Concomitant]
     Dosage: UNK UKN, BID
     Dates: start: 20120723
  6. PLAQUENIL [Concomitant]
     Dosage: 1 UKN, DAILY
     Dates: start: 20120723
  7. ANTIBIOTICS [Concomitant]
     Dosage: UNK
     Dates: start: 20111121, end: 20120430

REACTIONS (5)
  - Neoplasm malignant [Not Recovered/Not Resolved]
  - Food allergy [Not Recovered/Not Resolved]
  - Nasal polyps [Not Recovered/Not Resolved]
  - Arthropathy [Not Recovered/Not Resolved]
  - Inflammation [Unknown]
